FAERS Safety Report 13770481 (Version 1)
Quarter: 2017Q3

REPORT INFORMATION
  Report Type: Report from Study
  Country: None (occurrence: PL)
  Receive Date: 20170719
  Receipt Date: 20170719
  Transmission Date: 20171127
  Serious: Yes (Other)
  Sender: FDA-Public Use
  Company Number: PL-ABBVIE-17P-129-2034181-00

PATIENT
  Age: 8 Year
  Sex: Male

DRUGS (2)
  1. DEPAKINE [Suspect]
     Active Substance: VALPROATE SODIUM
     Indication: EPILEPSY
     Route: 048
     Dates: start: 20160301
  2. LAMOTRIGINE. [Concomitant]
     Active Substance: LAMOTRIGINE
     Indication: PRODUCT USED FOR UNKNOWN INDICATION
     Route: 065
     Dates: start: 201603

REACTIONS (9)
  - Seizure [Unknown]
  - Screaming [Unknown]
  - Agitation [Unknown]
  - Drug ineffective [Unknown]
  - Eye pain [Unknown]
  - Visual acuity reduced [Unknown]
  - Nervousness [Unknown]
  - Crying [Unknown]
  - Irritability [Unknown]

NARRATIVE: CASE EVENT DATE: 20160301
